FAERS Safety Report 9804673 (Version 1)
Quarter: 2014Q1

REPORT INFORMATION
  Report Type: Spontaneous
  Country: BR (occurrence: BR)
  Receive Date: 20140108
  Receipt Date: 20140108
  Transmission Date: 20141002
  Serious: Yes (Other)
  Sender: FDA-Public Use
  Company Number: BR-PFIZER INC-2014004193

PATIENT
  Age: 51 Year
  Sex: Female
  Weight: 62 kg

DRUGS (3)
  1. DETRUSITOL LA [Suspect]
     Dosage: 4 MG, 1X/DAY
     Dates: start: 20080530, end: 2009
  2. ANGIPRESS CD [Concomitant]
     Indication: BLOOD PRESSURE ABNORMAL
     Dosage: 50 (UNKNOWN UNITS), 1X/DAY
     Dates: start: 2004
  3. OMEPRAZOLE [Concomitant]
     Indication: GASTRIC DISORDER
     Dosage: ONCE WHEN FASTING BEFORE BREAKFAST
     Dates: start: 2004

REACTIONS (1)
  - Bladder disorder [Unknown]
